FAERS Safety Report 7815104-0 (Version None)
Quarter: 2011Q4

REPORT INFORMATION
  Report Type: 
  Country: None (occurrence: None)
  Receive Date: 20111014
  Receipt Date: 20111014
  Transmission Date: 20120403
  Serious: Yes (Other)
  Sender: FDA-Public Use
  Company Number: None

PATIENT
  Age: 62 Year
  Sex: Female
  Weight: 88.45 kg

DRUGS (1)
  1. CEFUROXIME [Suspect]
     Indication: CELLULITIS
     Dosage: 1 TABLET
     Route: 048
     Dates: start: 20110926, end: 20110929

REACTIONS (2)
  - URTICARIA THERMAL [None]
  - PRURITUS [None]
